FAERS Safety Report 6931431-3 (Version None)
Quarter: 2010Q3

REPORT INFORMATION
  Report Type: 
  Country: None (occurrence: None)
  Receive Date: 20100816
  Receipt Date: 20100729
  Transmission Date: 20110219
  Serious: Yes (Other)
  Sender: FDA-Public Use
  Company Number: ACO_01113_2010

PATIENT
  Sex: Female
  Weight: 47.6277 kg

DRUGS (3)
  1. AMPYRA [Suspect]
     Indication: MULTIPLE SCLEROSIS
     Dosage: 10 MG BID ORAL
     Route: 048
     Dates: start: 20100501, end: 20100617
  2. BACLOFEN [Concomitant]
  3. BETASERON [Concomitant]

REACTIONS (1)
  - HYPOKINESIA [None]
